FAERS Safety Report 24890859 (Version 1)
Quarter: 2025Q1

REPORT INFORMATION
  Report Type: Spontaneous
  Country: US (occurrence: None)
  Receive Date: 20250127
  Receipt Date: 20250127
  Transmission Date: 20250408
  Serious: Yes (Hospitalization)
  Sender: FDA-CTU
  Company Number: None

PATIENT
  Age: 74 Year
  Sex: Male
  Weight: 74.6 kg

DRUGS (2)
  1. APIXABAN [Suspect]
     Active Substance: APIXABAN
  2. APIXABAN [Suspect]
     Active Substance: APIXABAN

REACTIONS (4)
  - Cerebral infarction [None]
  - Metastases to liver [None]
  - Metastases to lung [None]
  - Metastases to lymph nodes [None]

NARRATIVE: CASE EVENT DATE: 20250125
